FAERS Safety Report 8987489 (Version 1)
Quarter: 2012Q4

REPORT INFORMATION
  Report Type: Report from Study
  Country: GB (occurrence: GB)
  Receive Date: 20121227
  Receipt Date: 20121227
  Transmission Date: 20130627
  Serious: Yes (Hospitalization)
  Sender: FDA-Public Use
  Company Number: GB-ROCHE-1162477

PATIENT
  Sex: Female
  Weight: 64.5 kg

DRUGS (4)
  1. BLINDED PERTUZUMAB [Suspect]
     Indication: BREAST CANCER
     Route: 065
  2. TRASTUZUMAB [Suspect]
     Indication: BREAST CANCER
     Route: 042
  3. DOCETAXEL [Suspect]
     Indication: BREAST CANCER
     Route: 065
  4. CARBOPLATIN [Suspect]
     Indication: BREAST CANCER
     Route: 065

REACTIONS (1)
  - Neutropenic sepsis [Recovered/Resolved]
